FAERS Safety Report 4472826-X (Version None)
Quarter: 2004Q4

REPORT INFORMATION
  Report Type: 
  Country: None (occurrence: None)
  Receive Date: 20041008
  Receipt Date: 20040923
  Transmission Date: 20050328
  Serious: Yes (Hospitalization, Other)
  Sender: FDA-Public Use
  Company Number: 2004-0007521

PATIENT
  Age: 31 Year
  Sex: Female

DRUGS (3)
  1. TENOFOVIR DISOPROXIL FUMARATE (TENOFOVIR DISOPROXIL FUMARATE) [Suspect]
     Indication: HIV INFECTION
  2. LAMIVUDINE (LAMIVUDINE) [Concomitant]
  3. ZIDOVUDINE [Concomitant]

REACTIONS (4)
  - ANAEMIA [None]
  - GLOMERULONEPHRITIS ACUTE [None]
  - KIDNEY ENLARGEMENT [None]
  - NEUTROPENIA [None]
